FAERS Safety Report 5629665-3 (Version None)
Quarter: 2008Q1

REPORT INFORMATION
  Report Type: 
  Country: None (occurrence: None)
  Receive Date: 20080218
  Receipt Date: 20080208
  Transmission Date: 20080703
  Serious: Yes (Hospitalization)
  Sender: FDA-Public Use
  Company Number: B0507077A

PATIENT
  Age: 92 Year
  Sex: Female

DRUGS (3)
  1. ARIXTRA [Suspect]
     Indication: HIP SURGERY
     Dosage: 1.5MG PER DAY
     Route: 058
     Dates: start: 20080127, end: 20080129
  2. LOXONIN [Suspect]
     Route: 065
  3. MUCOSTA [Concomitant]
     Route: 048

REACTIONS (1)
  - GASTRIC ULCER [None]
